FAERS Safety Report 24231984 (Version 1)
Quarter: 2024Q3

REPORT INFORMATION
  Report Type: Spontaneous
  Country: US (occurrence: None)
  Receive Date: 20240820
  Receipt Date: 20240820
  Transmission Date: 20241017
  Serious: Yes (Hospitalization)
  Sender: Public
  Company Number: None

PATIENT
  Sex: Female

DRUGS (2)
  1. AMBRISENTAN [Suspect]
     Active Substance: AMBRISENTAN
     Indication: Pulmonary hypertension
     Dosage: 10 MG DAILY ORAL?
     Route: 048
  2. TADALAFIL [Suspect]
     Active Substance: TADALAFIL

REACTIONS (5)
  - Cardiac failure [None]
  - Pulmonary oedema [None]
  - Dizziness [None]
  - Headache [None]
  - Wheezing [None]
